FAERS Safety Report 7250974-9 (Version None)
Quarter: 2011Q1

REPORT INFORMATION
  Report Type: 
  Country: None (occurrence: None)
  Receive Date: 20110128
  Receipt Date: 20110125
  Transmission Date: 20110831
  Serious: Yes (Hospitalization)
  Sender: FDA-Public Use
  Company Number: A0909922A

PATIENT
  Age: 25 Year
  Sex: Male
  Weight: 76 kg

DRUGS (2)
  1. INVESTIGATIONAL DRUG [Suspect]
     Route: 048
     Dates: start: 20101014
  2. BUSULFAN [Suspect]

REACTIONS (1)
  - PALMAR-PLANTAR ERYTHRODYSAESTHESIA SYNDROME [None]
